FAERS Safety Report 10008711 (Version 1)
Quarter: 2014Q1

REPORT INFORMATION
  Report Type: Spontaneous
  Country: US (occurrence: US)
  Receive Date: 20140312
  Receipt Date: 20140312
  Transmission Date: 20141002
  Serious: No
  Sender: FDA-Public Use
  Company Number: US-INCYTE CORPORATION-2012IN000259

PATIENT
  Age: 75 Year
  Sex: Female

DRUGS (10)
  1. JAKAFI [Suspect]
     Indication: MYELOFIBROSIS
     Dosage: 20 MG, BID
     Route: 048
     Dates: start: 20120204
  2. PRADAXA [Concomitant]
     Dosage: 150 MG, BID
     Route: 048
  3. LIZINOPRIL [Concomitant]
     Dosage: 20 MG, QD
     Route: 048
  4. LEVOTHYROXINE [Concomitant]
     Dosage: 112 MCG, QD
     Route: 048
  5. CYMBALTA [Concomitant]
     Dosage: 60 MG, QD
     Route: 048
  6. ALLOPURINOL [Concomitant]
     Dosage: 100 MG, QD
     Route: 048
  7. FISH OIL [Concomitant]
     Dosage: 1200 IU, QD
     Route: 048
  8. VITAMIN D [Concomitant]
     Dosage: 2000 IU, QD
     Route: 048
  9. COQ10 [Concomitant]
     Dosage: 100 MG, QD
     Route: 048
  10. NAPROXEN [Concomitant]
     Indication: PAIN
     Dosage: 200 MG, BID PRN
     Route: 048

REACTIONS (1)
  - Bone pain [Unknown]
